FAERS Safety Report 5055820-X (Version None)
Quarter: 2006Q3

REPORT INFORMATION
  Report Type: 
  Country: None (occurrence: None)
  Receive Date: 20060718
  Receipt Date: 20060718
  Transmission Date: 20061208
  Serious: Yes (Death, Hospitalization)
  Sender: FDA-Public Use
  Company Number: None

PATIENT
  Age: 67 Year
  Sex: Female
  Weight: 63.5036 kg

DRUGS (3)
  1. RENAGEL [Suspect]
     Indication: HYPERPHOSPHATAEMIA
     Dosage: 2400-4000 MG WITH MEALS TID PO
     Route: 048
     Dates: start: 20020117, end: 20060610
  2. PHOSLO [Concomitant]
  3. FOSRENOL [Concomitant]

REACTIONS (13)
  - CROHN'S DISEASE [None]
  - GASTROINTESTINAL NECROSIS [None]
  - HAEMODIALYSIS [None]
  - HAEMODYNAMIC INSTABILITY [None]
  - HYPERBILIRUBINAEMIA [None]
  - ILL-DEFINED DISORDER [None]
  - INFLAMMATION [None]
  - INTESTINAL ISCHAEMIA [None]
  - INTESTINAL STENOSIS [None]
  - LIVER FUNCTION TEST ABNORMAL [None]
  - MUCOSAL HAEMORRHAGE [None]
  - RESPIRATORY DISORDER [None]
  - SMALL INTESTINAL HAEMORRHAGE [None]
